FAERS Safety Report 5182202-2 (Version None)
Quarter: 2006Q4

REPORT INFORMATION
  Report Type: 
  Country: None (occurrence: None)
  Receive Date: 20061212
  Receipt Date: 20061201
  Transmission Date: 20070319
  Serious: Yes (Hospitalization, Other)
  Sender: FDA-Public Use
  Company Number: 2006095218

PATIENT
  Age: 49 Year
  Sex: Male
  Weight: 95.2554 kg

DRUGS (2)
  1. GENOTROPIN [Suspect]
     Indication: HYPOPITUITARISM
     Dosage: 1.5-2 YEARS
     Dates: end: 20060708
  2. SYNTHROID [Concomitant]

REACTIONS (3)
  - DEAFNESS UNILATERAL [None]
  - NEOPLASM RECURRENCE [None]
  - SINUSITIS [None]
